FAERS Safety Report 7503229-9 (Version None)
Quarter: 2011Q2

REPORT INFORMATION
  Report Type: 
  Country: None (occurrence: None)
  Receive Date: 20110524
  Receipt Date: 20110524
  Transmission Date: 20111010
  Serious: Yes (Other)
  Sender: FDA-Public Use
  Company Number: None

PATIENT
  Age: 27 Year
  Sex: Male
  Weight: 70.3075 kg

DRUGS (1)
  1. FLUTICASONE PROPIONATE [Suspect]
     Indication: MULTIPLE ALLERGIES
     Dosage: 1 SPRAY PER NOSTRIL 2X DAILY NASAL
     Route: 045
     Dates: start: 20110521, end: 20110522

REACTIONS (3)
  - ODYNOPHAGIA [None]
  - PHARYNGEAL INFLAMMATION [None]
  - SENSATION OF FOREIGN BODY [None]
